FAERS Safety Report 4781521-9 (Version None)
Quarter: 2005Q3

REPORT INFORMATION
  Report Type: 
  Country: None (occurrence: None)
  Receive Date: 20050928
  Receipt Date: 20050920
  Transmission Date: 20060218
  Serious: Yes (Life-Threatening)
  Sender: FDA-Public Use
  Company Number: IT-SANOFI-SYNTHELABO-A06200500225

PATIENT
  Age: 65 Year
  Sex: Male

DRUGS (4)
  1. PLAVIX [Suspect]
     Indication: ISCHAEMIC CARDIOMYOPATHY
     Route: 048
     Dates: start: 20050530, end: 20050601
  2. ENAPREN [Concomitant]
     Indication: VASODILATATION
     Route: 048
     Dates: start: 20050530, end: 20050530
  3. LANOXIN [Concomitant]
     Indication: CARDIOMYOPATHY
     Route: 048
     Dates: start: 20050530, end: 20050601
  4. INSULIN [Concomitant]
     Indication: DIABETES MELLITUS NON-INSULIN-DEPENDENT
     Dosage: UNK
     Route: 058

REACTIONS (1)
  - HYPERTENSIVE CRISIS [None]
